FAERS Safety Report 9467044 (Version 1)
Quarter: 2013Q3

REPORT INFORMATION
  Report Type: Spontaneous
  Country: AU (occurrence: AU)
  Receive Date: 20130820
  Receipt Date: 20130820
  Transmission Date: 20140515
  Serious: Yes (Other)
  Sender: FDA-Public Use
  Company Number: AU-GLAXOSMITHKLINE-B0912638A

PATIENT
  Age: 68 Year
  Sex: Female

DRUGS (2)
  1. AVAMYS [Suspect]
     Indication: HYPERSENSITIVITY
     Dosage: 2SPR TWICE PER DAY
     Route: 065
     Dates: start: 20130722
  2. PREDNISONE [Concomitant]
     Indication: UPPER RESPIRATORY TRACT INFLAMMATION
     Dates: start: 20130722, end: 20130724

REACTIONS (4)
  - Drug ineffective [Recovered/Resolved]
  - Product quality issue [Unknown]
  - Nasal inflammation [Unknown]
  - Nasal congestion [Unknown]
